FAERS Safety Report 7815312-9 (Version None)
Quarter: 2011Q4

REPORT INFORMATION
  Report Type: 
  Country: None (occurrence: None)
  Receive Date: 20111014
  Receipt Date: 20111006
  Transmission Date: 20120403
  Serious: Yes (Hospitalization)
  Sender: FDA-Public Use
  Company Number: GB-ALLERGAN-1111815US

PATIENT
  Age: 34 Year
  Sex: Female

DRUGS (2)
  1. JUVEDERM [Concomitant]
  2. VISTABEL [Suspect]
     Indication: SKIN WRINKLING
     Dosage: 90 UNITS, SINGLE
     Route: 030
     Dates: start: 20110903, end: 20110903

REACTIONS (6)
  - OCULAR HYPERAEMIA [None]
  - ANAPHYLACTIC REACTION [None]
  - ERYTHEMA [None]
  - PRURITUS [None]
  - NAUSEA [None]
  - OEDEMA [None]
